FAERS Safety Report 8524368-X (Version None)
Quarter: 2012Q2

REPORT INFORMATION
  Report Type: 
  Country: None (occurrence: None)
  Receive Date: 20120406
  Receipt Date: 20110831
  Transmission Date: 20120825
  Serious: Yes (Other)
  Sender: FDA-Public Use
  Company Number: US-2011-10387

PATIENT
  Age: 4 Year
  Sex: Male

DRUGS (5)
  1. METHYLPREDNISOLONE [Concomitant]
  2. CYCLOPHOSPHAMIDE [Concomitant]
  3. BUSULFEX [Suspect]
     Indication: STEM CELL TRANSPLANT
     Dosage: INTRAVENOUS
     Route: 042
  4. ANTI-THYMOCYTE GLOBULIN NOS [Concomitant]
  5. CYCLOSPORINE [Concomitant]

REACTIONS (1)
  - CYTOMEGALOVIRUS INFECTION [None]
